FAERS Safety Report 4718879-2 (Version None)
Quarter: 2005Q3

REPORT INFORMATION
  Report Type: 
  Country: None (occurrence: None)
  Receive Date: 20050719
  Receipt Date: 20050630
  Transmission Date: 20060218
  Serious: Yes (Other)
  Sender: FDA-Public Use
  Company Number: GBS050617627

PATIENT
  Age: 52 Year
  Sex: Female

DRUGS (13)
  1. XIGRIS [Suspect]
     Indication: SEPSIS
     Dosage: 24 UG/KG/HR
     Dates: start: 20050326, end: 20050326
  2. TERLIPRESSIN [Concomitant]
  3. DOBUTAMINE HCL IN DEXTROSE 5% [Concomitant]
  4. NORADRENALINE [Concomitant]
  5. CEFTRIAXONE [Concomitant]
  6. HYDROCORTISONE (HYDROCORTISONE  /00028601/) [Concomitant]
  7. PROPOFOL [Concomitant]
  8. ALFENTANIL [Concomitant]
  9. TAZOCIN [Concomitant]
  10. GENTAMICIN [Concomitant]
  11. CEFUROXIME [Concomitant]
  12. METRONIDAZOLE [Concomitant]
  13. RANITIDINE [Concomitant]

REACTIONS (4)
  - INTERNATIONAL NORMALISED RATIO INCREASED [None]
  - PLATELET COUNT [None]
  - PLATELET COUNT DECREASED [None]
  - URINARY BLADDER HAEMORRHAGE [None]
